FAERS Safety Report 23396884 (Version 1)
Quarter: 2024Q1

REPORT INFORMATION
  Report Type: Spontaneous
  Country: US (occurrence: None)
  Receive Date: 20240111
  Receipt Date: 20240111
  Transmission Date: 20240410
  Serious: No
  Sender: FDA-Public Use
  Company Number: None

PATIENT
  Sex: 0

DRUGS (1)
  1. UBROGEPANT [Suspect]
     Active Substance: UBROGEPANT

REACTIONS (3)
  - Chills [None]
  - Delirium [None]
  - Confusional state [None]
